FAERS Safety Report 24693901 (Version 1)
Quarter: 2024Q4

REPORT INFORMATION
  Report Type: Spontaneous
  Country: US (occurrence: US)
  Receive Date: 20241204
  Receipt Date: 20241204
  Transmission Date: 20250115
  Serious: No
  Sender: ALEMBIC
  Company Number: US-ALEMBIC PHARMACUETICALS LIMITED-2024SCAL001721

PATIENT
  Age: 21 Year
  Sex: Female

DRUGS (2)
  1. DAPSONE [Suspect]
     Active Substance: DAPSONE
     Indication: Acne
     Dosage: 7.5 PERCENT, QD
     Route: 061
     Dates: start: 20241119, end: 20241119
  2. TRETINOIN [Concomitant]
     Active Substance: TRETINOIN
     Indication: Acne
     Dosage: UNK
     Route: 065
     Dates: start: 20241119

REACTIONS (4)
  - Skin burning sensation [Recovered/Resolved]
  - Facial pain [Recovered/Resolved]
  - Product quality issue [Unknown]
  - Product physical consistency issue [Unknown]

NARRATIVE: CASE EVENT DATE: 20241119
